FAERS Safety Report 19038667 (Version 4)
Quarter: 2021Q2

REPORT INFORMATION
  Report Type: Spontaneous
  Country: JP (occurrence: JP)
  Receive Date: 20210322
  Receipt Date: 20210505
  Transmission Date: 20210717
  Serious: Yes (Hospitalization, Other)
  Sender: FDA-Public Use
  Company Number: JP-JNJFOC-20210225057

PATIENT
  Age: 55 Year
  Sex: Male

DRUGS (2)
  1. TRAMCET [Suspect]
     Active Substance: ACETAMINOPHEN\TRAMADOL
     Indication: PAIN
     Dosage: DOSE UNKNOWN
     Route: 048
     Dates: start: 2020
  2. ANTIDIABETIC AGENTS [Concomitant]
     Active Substance: UNSPECIFIED INGREDIENT
     Indication: DIABETES MELLITUS
     Dosage: DOSE UNKNOWN
     Route: 065

REACTIONS (6)
  - Throat irritation [Recovered/Resolved]
  - Sensory disturbance [Recovered/Resolved]
  - Withdrawal syndrome [Recovered/Resolved]
  - Hypoglycaemia [Recovered/Resolved]
  - Cellulitis [Recovered/Resolved]
  - Dyspnoea [Recovered/Resolved]

NARRATIVE: CASE EVENT DATE: 2020
